FAERS Safety Report 5460060-6 (Version None)
Quarter: 2007Q3

REPORT INFORMATION
  Report Type: 
  Country: None (occurrence: None)
  Receive Date: 20070919
  Receipt Date: 20070509
  Transmission Date: 20080115
  Serious: No
  Sender: FDA-Public Use
  Company Number: US-ASTRAZENECA-2007UW11153

PATIENT
  Sex: Female

DRUGS (2)
  1. SEROQUEL [Suspect]
     Indication: SLEEP DISORDER THERAPY
     Route: 048
     Dates: start: 20061201
  2. VALIUM [Concomitant]

REACTIONS (4)
  - JOINT SWELLING [None]
  - MEMORY IMPAIRMENT [None]
  - PALPITATIONS [None]
  - WEIGHT INCREASED [None]
